FAERS Safety Report 13081095 (Version 1)
Quarter: 2017Q1

REPORT INFORMATION
  Report Type: Spontaneous
  Country: US (occurrence: US)
  Receive Date: 20170103
  Receipt Date: 20170103
  Transmission Date: 20170428
  Serious: Yes (Other)
  Sender: FDA-Public Use
  Company Number: US-DSJP-DSU-2016-143854

PATIENT

DRUGS (5)
  1. BENICAR [Suspect]
     Active Substance: OLMESARTAN MEDOXOMIL
     Indication: HYPERTENSION
     Dosage: 40 MG, QD
     Route: 048
     Dates: start: 2007, end: 201611
  2. OLMESARTAN AGH [Suspect]
     Active Substance: OLMESARTAN
     Dosage: 40 MG, QD
     Route: 048
     Dates: start: 20161117, end: 20161223
  3. HYDROCHLOROTH [Suspect]
     Active Substance: HYDROCHLOROTHIAZIDE
     Indication: HYPERTENSION
     Dosage: 12.5 MG, QD
     Dates: start: 20161224
  4. BENICAR [Suspect]
     Active Substance: OLMESARTAN MEDOXOMIL
     Dosage: 40 MG, QD
     Route: 048
     Dates: start: 20161224
  5. ASPIRIN. [Concomitant]
     Active Substance: ASPIRIN
     Indication: PRODUCT USED FOR UNKNOWN INDICATION
     Dosage: UNK

REACTIONS (5)
  - Stent placement [Recovered/Resolved]
  - Blood pressure increased [Recovering/Resolving]
  - Blood cholesterol decreased [Unknown]
  - Feeling abnormal [Recovered/Resolved]
  - Body height decreased [Unknown]

NARRATIVE: CASE EVENT DATE: 2016
